FAERS Safety Report 24762136 (Version 1)
Quarter: 2024Q4

REPORT INFORMATION
  Report Type: Report from Study
  Country: PL (occurrence: PL)
  Receive Date: 20241221
  Receipt Date: 20241221
  Transmission Date: 20250115
  Serious: Yes (Other)
  Sender: AUROBINDO
  Company Number: PL-AUROBINDO-AUR-APL-2024-061952

PATIENT
  Sex: Female

DRUGS (5)
  1. ACETAMINOPHEN [Suspect]
     Active Substance: ACETAMINOPHEN
     Indication: Product used for unknown indication
     Dosage: ADMINISTERED INTRAVENOUSLY DURING THE PROCEDURE.
     Route: 042
  2. DOXYCYCLINE [Suspect]
     Active Substance: DOXYCYCLINE
     Indication: Antibiotic therapy
     Dosage: FOR 5 DAYS, STARTING 2 DAYS BEFORE THE PROCEDURE.
     Route: 048
  3. KETOPROFEN [Suspect]
     Active Substance: KETOPROFEN
     Indication: Product used for unknown indication
     Dosage: ADMINISTERED INTRAVENOUSLY DURING THE PROCEDURE.
     Route: 042
  4. LIPIODOL [Suspect]
     Active Substance: ETHIODIZED OIL
     Indication: Fallopian tube obstruction
     Dosage: 10 MILLILITER, ONCE A DAY
     Route: 015
  5. VISIPAQUE [Suspect]
     Active Substance: IODIXANOL
     Indication: Salpingogram
     Dosage: INJECTED INTO THE INNER FALLOPIAN TUBE OSTIA VIA A CATHETER
     Route: 015

REACTIONS (3)
  - Ectopic pregnancy [Unknown]
  - Product use in unapproved indication [Unknown]
  - Drug exposure before pregnancy [Unknown]
